FAERS Safety Report 4591756-6 (Version None)
Quarter: 2005Q1

REPORT INFORMATION
  Report Type: 
  Country: None (occurrence: None)
  Receive Date: 20050125
  Receipt Date: 20040812
  Transmission Date: 20050727
  Serious: No
  Sender: FDA-Public Use
  Company Number: USA040875368

PATIENT
  Age: 71 Year
  Sex: Female
  Weight: 52 kg

DRUGS (7)
  1. FORTEO [Suspect]
     Indication: OSTEOPOROSIS
     Dosage: 20 UG/1 DAY
     Dates: start: 20040805
  2. GERITOL [Concomitant]
  3. TUMS (CALCIUM CARBONATE) [Concomitant]
  4. PLAQUENIL [Concomitant]
  5. MEVACOR [Concomitant]
  6. ASPIRIN [Concomitant]
  7. SOY-BASED HORMONE [Concomitant]

REACTIONS (5)
  - BURNING SENSATION [None]
  - CONSTIPATION [None]
  - DIZZINESS [None]
  - NAUSEA [None]
  - PAIN IN EXTREMITY [None]
